FAERS Safety Report 14332526 (Version 1)
Quarter: 2017Q4

REPORT INFORMATION
  Report Type: Other
  Country: US (occurrence: US)
  Receive Date: 20171228
  Receipt Date: 20171228
  Transmission Date: 20180321
  Serious: Yes (Other)
  Sender: FDA-Public Use
  Company Number: US-ACTELION-A-CH2017-163928

PATIENT
  Sex: Female

DRUGS (7)
  1. TREPROSTINIL [Concomitant]
     Active Substance: TREPROSTINIL
     Route: 058
  2. SILDENAFIL. [Concomitant]
     Active Substance: SILDENAFIL
     Indication: PORTOPULMONARY HYPERTENSION
  3. OXYGEN. [Concomitant]
     Active Substance: OXYGEN
  4. NITRIC OXIDE. [Concomitant]
     Active Substance: NITRIC OXIDE
  5. AMBRISENTAN [Concomitant]
     Active Substance: AMBRISENTAN
  6. TREPROSTINIL [Concomitant]
     Active Substance: TREPROSTINIL
     Dosage: UNK
     Route: 042
  7. BOSENTAN. [Suspect]
     Active Substance: BOSENTAN
     Indication: PORTOPULMONARY HYPERTENSION
     Route: 048

REACTIONS (8)
  - Cardiac failure high output [Unknown]
  - Varices oesophageal [Unknown]
  - Hypersplenism [Unknown]
  - Haemodynamic instability [Unknown]
  - Haematemesis [Unknown]
  - Biopsy liver [Unknown]
  - Splenic embolism [Unknown]
  - Thrombocytopenia [Unknown]
